FAERS Safety Report 9308904 (Version 1)
Quarter: 2013Q2

REPORT INFORMATION
  Report Type: Spontaneous
  Country: BR (occurrence: BR)
  Receive Date: 20130524
  Receipt Date: 20130524
  Transmission Date: 20140414
  Serious: Yes (Other)
  Sender: FDA-Public Use
  Company Number: BR-ASTRAZENECA-2013SE29674

PATIENT
  Age: 86 Year
  Sex: Female

DRUGS (1)
  1. CRESTOR [Suspect]
     Indication: BLOOD CHOLESTEROL INCREASED
     Route: 048

REACTIONS (5)
  - Fall [Recovering/Resolving]
  - Intraocular haematoma [Not Recovered/Not Resolved]
  - Head injury [Unknown]
  - Dizziness [Recovered/Resolved]
  - Musculoskeletal pain [Not Recovered/Not Resolved]
